FAERS Safety Report 9173217 (Version 2)
Quarter: 2013Q1

REPORT INFORMATION
  Report Type: Spontaneous
  Country: IT (occurrence: None)
  Receive Date: 20130314
  Receipt Date: 20130322
  Transmission Date: 20140127
  Serious: Yes (Other)
  Sender: FDA-Public Use
  Company Number: IT-ALKEM-000018

PATIENT
  Sex: 0

DRUGS (1)
  1. GABAPENTIN [Suspect]
     Indication: PRODUCT USED FOR UNKNOWN INDICATION

REACTIONS (14)
  - Delirium [None]
  - Withdrawal syndrome [None]
  - Treatment noncompliance [None]
  - Incoherent [None]
  - Abnormal behaviour [None]
  - Restlessness [None]
  - Persecutory delusion [None]
  - Disturbance in attention [None]
  - Disorientation [None]
  - Agitation [None]
  - Anxiety [None]
  - Hyporeflexia [None]
  - Somnolence [None]
  - Off label use [None]
